FAERS Safety Report 20669413 (Version 1)
Quarter: 2022Q2

REPORT INFORMATION
  Report Type: Spontaneous
  Country: US (occurrence: None)
  Receive Date: 20220403
  Receipt Date: 20220403
  Transmission Date: 20220720
  Serious: No
  Sender: FDA-Public Use
  Company Number: None

PATIENT
  Age: 28 Year
  Sex: Male
  Weight: 94.5 kg

DRUGS (12)
  1. CAPLYTA [Suspect]
     Active Substance: LUMATEPERONE
     Indication: Bipolar II disorder
     Dosage: OTHER QUANTITY : 1 CAPSULE(S);?FREQUENCY : DAILY;?
     Route: 048
     Dates: start: 20220311, end: 20220330
  2. CAPLYTA [Suspect]
     Active Substance: LUMATEPERONE
     Indication: Bipolar disorder
  3. LITHIUM CARBONATE [Concomitant]
     Active Substance: LITHIUM CARBONATE
  4. LAMICTAL [Concomitant]
     Active Substance: LAMOTRIGINE
  5. ARMODAFINIL [Concomitant]
     Active Substance: ARMODAFINIL
  6. CLONAZEPAM [Concomitant]
     Active Substance: CLONAZEPAM
  7. GABAPENTIN [Concomitant]
     Active Substance: GABAPENTIN
  8. TRAMADOL [Concomitant]
     Active Substance: TRAMADOL
  9. METHYLPREDNISOLONE [Concomitant]
     Active Substance: METHYLPREDNISOLONE
  10. STELARA [Concomitant]
     Active Substance: USTEKINUMAB
  11. NAPROXEN SODIUM [Concomitant]
     Active Substance: NAPROXEN SODIUM
  12. TYLENOL [Concomitant]
     Active Substance: ACETAMINOPHEN

REACTIONS (10)
  - Memory impairment [None]
  - Extrapyramidal disorder [None]
  - Dyskinesia [None]
  - Tremor [None]
  - Akathisia [None]
  - Suicidal ideation [None]
  - Anxiety [None]
  - Panic attack [None]
  - Restlessness [None]
  - Therapy interrupted [None]

NARRATIVE: CASE EVENT DATE: 20220330
